FAERS Safety Report 15658301 (Version 23)
Quarter: 2022Q4

REPORT INFORMATION
  Report Type: Spontaneous
  Country: US (occurrence: US)
  Receive Date: 20181126
  Receipt Date: 20221227
  Transmission Date: 20230113
  Serious: Yes (Hospitalization, Other)
  Sender: FDA-Public Use
  Company Number: US-PFIZER INC-2018485086

PATIENT
  Age: 64 Year
  Sex: Female
  Weight: 61 kg

DRUGS (6)
  1. DIFLUCAN [Suspect]
     Active Substance: FLUCONAZOLE
     Indication: Fungal infection
     Dosage: 150 MG
  2. DIFLUCAN [Suspect]
     Active Substance: FLUCONAZOLE
     Dosage: UNK, ALTERNATE DAY (EVERY OTHER DAY)
  3. DIFLUCAN [Suspect]
     Active Substance: FLUCONAZOLE
     Dosage: 100 MG
  4. DIFLUCAN [Suspect]
     Active Substance: FLUCONAZOLE
     Dosage: 100 MG
     Route: 048
  5. DIFLUCAN [Suspect]
     Active Substance: FLUCONAZOLE
     Dosage: 50 MG
  6. DIFLUCAN [Suspect]
     Active Substance: FLUCONAZOLE
     Dosage: 50 MG, 1X/DAY
     Route: 048

REACTIONS (13)
  - Urinary tract infection [Unknown]
  - Myocardial infarction [Unknown]
  - Neurogenic bladder [Unknown]
  - Seroma [Unknown]
  - Infection [Unknown]
  - Influenza [Unknown]
  - Pyrexia [Unknown]
  - Illness [Unknown]
  - Candida infection [Unknown]
  - Vomiting [Unknown]
  - Malaise [Unknown]
  - Product dispensing error [Unknown]
  - Intentional product misuse [Unknown]
